FAERS Safety Report 8604904-5 (Version None)
Quarter: 2012Q3

REPORT INFORMATION
  Report Type: 
  Country: None (occurrence: None)
  Receive Date: 20120820
  Receipt Date: 20120813
  Transmission Date: 20120928
  Serious: Yes (Death)
  Sender: FDA-Public Use
  Company Number: US-ASTELLAS-2012US006964

PATIENT
  Sex: Female
  Weight: 61 kg

DRUGS (1)
  1. PROGRAF [Suspect]
     Indication: HEART TRANSPLANT
     Dosage: 1 MG, UNKNOWN/D
     Route: 048
     Dates: start: 20100404

REACTIONS (1)
  - DEATH [None]
